FAERS Safety Report 10287565 (Version 3)
Quarter: 2014Q4

REPORT INFORMATION
  Report Type: Spontaneous
  Country: US (occurrence: None)
  Receive Date: 20140707
  Receipt Date: 20141010
  Transmission Date: 20150528
  Serious: Yes (Hospitalization)
  Sender: FDA-Public Use
  Company Number: 2014-US-008054

PATIENT
  Age: 40 Year
  Sex: Male
  Weight: 77.1 kg

DRUGS (4)
  1. XYREM [Suspect]
     Active Substance: SODIUM OXYBATE
     Indication: NARCOLEPSY
     Dosage: 2.25 G, BID, ORAL
     Route: 048
     Dates: start: 2009, end: 2010
  2. XYREM [Suspect]
     Active Substance: SODIUM OXYBATE
     Indication: CATAPLEXY
     Dosage: 2.25 G, BID, ORAL
     Route: 048
     Dates: start: 2009, end: 2010
  3. DEXTROAMPHETAMINE (DEXAMFETAMINE) [Concomitant]
  4. NUVIGIL (AMODAFINIL) [Concomitant]

REACTIONS (2)
  - Strangulated hernia [None]
  - Hernia repair [None]

NARRATIVE: CASE EVENT DATE: 20140616
